FAERS Safety Report 19469270 (Version 3)
Quarter: 2022Q1

REPORT INFORMATION
  Report Type: Report from Study
  Country: US (occurrence: US)
  Receive Date: 20210628
  Receipt Date: 20220325
  Transmission Date: 20220424
  Serious: Yes (Death, Life-Threatening, Hospitalization, Other)
  Sender: FDA-Public Use
  Company Number: NVSC2021US141185

PATIENT
  Age: 70 Year
  Sex: Female
  Weight: 79.3 kg

DRUGS (1)
  1. KYMRIAH [Suspect]
     Active Substance: TISAGENLECLEUCEL
     Indication: Diffuse large B-cell lymphoma refractory
     Dosage: 3.5 X 10E8, ONCE/SINGLE
     Route: 041
     Dates: start: 20210521, end: 20210521

REACTIONS (22)
  - Death [Fatal]
  - Neutropenic sepsis [Recovered/Resolved]
  - Cytokine release syndrome [Unknown]
  - Hypotension [Unknown]
  - Encephalopathy [Unknown]
  - Diffuse large B-cell lymphoma refractory [Unknown]
  - Malignant neoplasm progression [Unknown]
  - Hydronephrosis [Unknown]
  - Colitis [Unknown]
  - Mass [Unknown]
  - Urinary tract infection [Unknown]
  - Pseudomonas infection [Unknown]
  - Enterococcal infection [Unknown]
  - Acute kidney injury [Unknown]
  - Haematuria [Unknown]
  - Respiratory failure [Unknown]
  - Supraventricular tachycardia [Unknown]
  - Metabolic acidosis [Recovered/Resolved]
  - Lactic acidosis [Recovered/Resolved]
  - Malnutrition [Unknown]
  - Hypophagia [Unknown]
  - Out of specification test results [Unknown]

NARRATIVE: CASE EVENT DATE: 20210611
